FAERS Safety Report 11024989 (Version 3)
Quarter: 2015Q2

REPORT INFORMATION
  Report Type: Spontaneous
  Country: US (occurrence: US)
  Receive Date: 20150414
  Receipt Date: 20150604
  Transmission Date: 20150821
  Serious: Yes (Other)
  Sender: FDA-Public Use
  Company Number: US-ENDO PHARMACEUTICALS INC.-2015-000389

PATIENT
  Age: 10 Year
  Sex: Female
  Weight: 25.7 kg

DRUGS (3)
  1. SUPPRELIN LA [Suspect]
     Active Substance: HISTRELIN ACETATE
     Route: 065
     Dates: start: 201311
  2. SUPPRELIN LA [Suspect]
     Active Substance: HISTRELIN ACETATE
     Route: 065
     Dates: start: 20120827
  3. SUPPRELIN LA [Suspect]
     Active Substance: HISTRELIN ACETATE
     Indication: PRECOCIOUS PUBERTY
     Route: 065
     Dates: start: 20141231, end: 20150407

REACTIONS (5)
  - Incorrect drug administration duration [Recovered/Resolved]
  - Implant site abscess [Not Recovered/Not Resolved]
  - Device expulsion [Recovered/Resolved]
  - Implant site cellulitis [Recovering/Resolving]
  - Patient-device incompatibility [Recovered/Resolved]

NARRATIVE: CASE EVENT DATE: 201310
